FAERS Safety Report 10889889 (Version 1)
Quarter: 2015Q1

REPORT INFORMATION
  Report Type: Spontaneous
  Country: US (occurrence: US)
  Receive Date: 20150305
  Receipt Date: 20150305
  Transmission Date: 20150721
  Serious: Yes (Hospitalization, Other)
  Sender: FDA-Public Use
  Company Number: US-SUN PHARMACEUTICAL INDUSTRIES LTD-2015SUN00614

PATIENT

DRUGS (1)
  1. ALENDRONATE SODIUM 5MG TABLET [Suspect]
     Active Substance: ALENDRONATE SODIUM
     Indication: PRODUCT USED FOR UNKNOWN INDICATION
     Dosage: CHEWED THE DRUG
     Route: 048

REACTIONS (6)
  - Stomatitis [Unknown]
  - Delirium [Unknown]
  - Wrong technique in drug usage process [Unknown]
  - Hypertensive emergency [Recovering/Resolving]
  - Dehydration [Unknown]
  - Oesophageal motility disorder [Unknown]
